FAERS Safety Report 24196964 (Version 1)
Quarter: 2024Q3

REPORT INFORMATION
  Report Type: Spontaneous
  Country: PL (occurrence: PL)
  Receive Date: 20240810
  Receipt Date: 20240810
  Transmission Date: 20241017
  Serious: Yes (Other)
  Sender: AMGEN
  Company Number: PL-AMGEN-POLSP2024155895

PATIENT
  Age: 59 Year
  Sex: Male

DRUGS (5)
  1. VECTIBIX [Suspect]
     Active Substance: PANITUMUMAB
     Indication: Colorectal cancer
     Dosage: UNK, 1ST LINE
     Route: 065
     Dates: start: 20190701
  2. LEUCOVORIN [Concomitant]
     Active Substance: LEUCOVORIN\LEUCOVORIN CALCIUM
     Indication: Colorectal cancer
     Dosage: UNK
     Dates: start: 20210701
  3. FLUOROURACIL [Concomitant]
     Active Substance: FLUOROURACIL
     Indication: Colorectal cancer
     Dosage: UNK
     Dates: start: 20210701
  4. OXALIPLATIN [Concomitant]
     Active Substance: OXALIPLATIN
     Indication: Colorectal cancer
     Dosage: UNK
     Dates: start: 20210701
  5. LVF [Concomitant]
     Indication: Colorectal cancer
     Dosage: UNK
     Dates: start: 202102

REACTIONS (8)
  - Neuropathy peripheral [Unknown]
  - Colorectal cancer [Unknown]
  - Diarrhoea [Unknown]
  - Skin lesion [Unknown]
  - Rash maculo-papular [Unknown]
  - Erythema [Unknown]
  - Pruritus [Unknown]
  - Hypomagnesaemia [Unknown]

NARRATIVE: CASE EVENT DATE: 20221101
